FAERS Safety Report 14200462 (Version 1)
Quarter: 2017Q4

REPORT INFORMATION
  Report Type: Spontaneous
  Country: US (occurrence: US)
  Receive Date: 20171117
  Receipt Date: 20171117
  Transmission Date: 20180321
  Serious: Yes (Other)
  Sender: FDA-Public Use
  Company Number: US-NOVOPROD-525336

PATIENT
  Age: 17 Year
  Sex: Male
  Weight: 72.56 kg

DRUGS (3)
  1. NOVOLOG [Suspect]
     Active Substance: INSULIN ASPART
     Indication: TYPE 1 DIABETES MELLITUS
     Dosage: UNKNOWN
     Route: 058
     Dates: start: 2007, end: 201611
  2. NOVOLOG [Suspect]
     Active Substance: INSULIN ASPART
     Dosage: BOLUS CORRECTIONS
     Route: 058
     Dates: start: 201611, end: 201612
  3. NOVOLOG [Suspect]
     Active Substance: INSULIN ASPART
     Dosage: BOLUS CORRECTIONS
     Route: 058
     Dates: start: 201611, end: 201612

REACTIONS (3)
  - Blood glucose increased [Recovered/Resolved]
  - Glycosylated haemoglobin increased [Recovering/Resolving]
  - Product quality issue [Recovered/Resolved]

NARRATIVE: CASE EVENT DATE: 201611
